FAERS Safety Report 9597056 (Version 1)
Quarter: 2013Q4

REPORT INFORMATION
  Report Type: Spontaneous
  Country: US (occurrence: US)
  Receive Date: 20131004
  Receipt Date: 20131004
  Transmission Date: 20140711
  Serious: Yes (Hospitalization)
  Sender: FDA-Public Use
  Company Number: US-B.I. PHARMACEUTICALS,INC./RIDGEFIELD-2013-BI-30563BP

PATIENT
  Age: 47 Year
  Sex: Male
  Weight: 100 kg

DRUGS (6)
  1. SPIRIVA [Suspect]
     Indication: CHRONIC OBSTRUCTIVE PULMONARY DISEASE
     Dosage: 18 MCG
     Route: 055
     Dates: start: 2010
  2. PREDNISONE [Concomitant]
     Dosage: 60 MG
     Route: 048
  3. DUONEB [Concomitant]
     Indication: CHRONIC OBSTRUCTIVE PULMONARY DISEASE
     Dosage: FORMULATION: INHLATION SOLUTION
  4. ADVAIR [Concomitant]
     Indication: CHRONIC OBSTRUCTIVE PULMONARY DISEASE
     Route: 055
  5. LASIX [Concomitant]
     Indication: JOINT SWELLING
     Dosage: 20 MG
     Route: 048
  6. XANAX [Concomitant]
     Indication: ANXIETY
     Dosage: 5 MG
     Route: 048

REACTIONS (6)
  - Benign lung neoplasm [Not Recovered/Not Resolved]
  - Atelectasis [Not Recovered/Not Resolved]
  - Chronic obstructive pulmonary disease [Recovered/Resolved]
  - Atelectasis [Recovered/Resolved]
  - Chronic obstructive pulmonary disease [Recovered/Resolved]
  - Chest pain [Recovered/Resolved]
